FAERS Safety Report 24239014 (Version 1)
Quarter: 2024Q3

REPORT INFORMATION
  Report Type: Report from Study
  Country: US (occurrence: US)
  Receive Date: 20240822
  Receipt Date: 20240822
  Transmission Date: 20241017
  Serious: Yes (Death, Other)
  Sender: INSMED
  Company Number: US-INSMED, INC.-2023-04204-US

PATIENT
  Sex: Female

DRUGS (1)
  1. ARIKAYCE [Suspect]
     Active Substance: AMIKACIN
     Indication: Product used for unknown indication
     Dosage: 590 MILLIGRAM, QD
     Route: 055

REACTIONS (10)
  - Death [Fatal]
  - Deafness [Unknown]
  - Nausea [Unknown]
  - Malaise [Unknown]
  - Illness [Unknown]
  - Product dose omission issue [Unknown]
  - Accidental underdose [Unknown]
  - Device issue [Unknown]
  - Drug dose omission by device [Unknown]
  - Incorrect product administration duration [Unknown]

NARRATIVE: CASE EVENT DATE: 20230101
